FAERS Safety Report 12526175 (Version 3)
Quarter: 2016Q3

REPORT INFORMATION
  Report Type: Spontaneous
  Country: US (occurrence: US)
  Receive Date: 20160705
  Receipt Date: 20160808
  Transmission Date: 20161109
  Serious: No
  Sender: FDA-Public Use
  Company Number: US-PFIZER INC-2016311939

PATIENT
  Age: 88 Year
  Sex: Female
  Weight: 45 kg

DRUGS (23)
  1. TIKOSYN [Suspect]
     Active Substance: DOFETILIDE
     Dosage: UNK
     Dates: start: 20160404
  2. OMEPRAZOLE. [Concomitant]
     Active Substance: OMEPRAZOLE
     Dosage: 20 MG, AS NEEDED
  3. TRAMADOL. [Concomitant]
     Active Substance: TRAMADOL
     Dosage: 25 MG, AS NEEDED
  4. SIMVASTATIN. [Concomitant]
     Active Substance: SIMVASTATIN
     Dosage: 20 MG, 1X/DAY (8 PM)
  5. TIKOSYN [Suspect]
     Active Substance: DOFETILIDE
     Indication: ATRIAL FIBRILLATION
     Dosage: 125 UG, 2X/DAY (8 AM AND 8 PM)
     Route: 048
     Dates: start: 20160606
  6. MIRALAX [Concomitant]
     Active Substance: POLYETHYLENE GLYCOL 3350
     Dosage: UNK, AS NEEDED (IN AM) (MIXED IN WATER)
  7. FERROUS SULFATE. [Concomitant]
     Active Substance: FERROUS SULFATE
     Dosage: 28 MG, UNK (M-W-F AT 8 AM)
  8. TYLENOL [Concomitant]
     Active Substance: ACETAMINOPHEN
     Dosage: 500 MG, 2X/DAY (8 AM + 8 PM)
  9. TRAMADOL. [Concomitant]
     Active Substance: TRAMADOL
     Dosage: 75 MG, DAILY (50 MG AT 8 AM AND 25 MG AT 8 PM )
  10. TIKOSYN [Suspect]
     Active Substance: DOFETILIDE
     Indication: ATRIAL FIBRILLATION
     Dosage: 125 UG, 2X/DAY
     Route: 048
     Dates: start: 20160407
  11. SERTRALINE [Concomitant]
     Active Substance: SERTRALINE HYDROCHLORIDE
     Indication: DEPRESSION
     Dosage: 25 MG, UNK
     Dates: start: 20160531
  12. DOXAZOSIN MESYLATE. [Concomitant]
     Active Substance: DOXAZOSIN MESYLATE
     Dosage: 2 MG, 1X/DAY (8 PM)
     Dates: start: 20110310
  13. VITAMIN D3 [Concomitant]
     Active Substance: CHOLECALCIFEROL
     Dosage: 1000 IU, 1X/DAY (8 PM)
  14. PNEUMOVAX 23 [Concomitant]
     Active Substance: PNEUMOCOCCAL VACCINE, POLYVALENT 23
     Dosage: UNK
     Dates: start: 20141003, end: 20141003
  15. PREVNAR 13 [Concomitant]
     Active Substance: PNEUMOCOCCAL 13-VALENT CONJUGATE VACCINE
     Dosage: UNK
     Dates: start: 20160315, end: 20160315
  16. ASA EC [Concomitant]
     Dosage: 81 MG, DAILY (PM)
  17. SENNA [Concomitant]
     Active Substance: SENNA LEAF\SENNOSIDES\SENNOSIDES A AND B
     Dosage: UNK (M-W-FRIDAY AM)
  18. DOCUSATE SODIUM. [Concomitant]
     Active Substance: DOCUSATE SODIUM
     Dosage: 100 MG, UNK (DOCUSATE SODIUM 100 MG EVERY 8 PM, AND TUES, THRUS, SAT AND SUN AT 8 AM)
  19. PROLIA [Concomitant]
     Active Substance: DENOSUMAB
     Dosage: UNK (EVERY 6 MONTHS )
     Route: 058
     Dates: start: 201507
  20. BENAZEPRIL [Concomitant]
     Active Substance: BENAZEPRIL HYDROCHLORIDE
     Dosage: 20 MG, 1X/DAY (8 AM)
  21. REMERON [Concomitant]
     Active Substance: MIRTAZAPINE
     Dosage: 15 MG, 1X/DAY (8 PM)
  22. DOCUSATE SODIUM. [Concomitant]
     Active Substance: DOCUSATE SODIUM
     Dosage: UNK
  23. SERTRALINE [Concomitant]
     Active Substance: SERTRALINE HYDROCHLORIDE
     Dosage: 50 MG, DAILY (AM)

REACTIONS (5)
  - Confusional state [Recovering/Resolving]
  - Anxiety [Not Recovered/Not Resolved]
  - Abnormal behaviour [Unknown]
  - Fall [Unknown]
  - Speech disorder [Unknown]

NARRATIVE: CASE EVENT DATE: 201604
